FAERS Safety Report 13672317 (Version 1)
Quarter: 2017Q2

REPORT INFORMATION
  Report Type: Report from Study
  Country: US (occurrence: MX)
  Receive Date: 20170620
  Receipt Date: 20170620
  Transmission Date: 20170830
  Serious: Yes (Life-Threatening, Other)
  Sender: FDA-Public Use
  Company Number: US-SUNOVION-2017SUN002556

PATIENT
  Sex: Male

DRUGS (11)
  1. VERAPAMIL [Concomitant]
     Active Substance: VERAPAMIL HYDROCHLORIDE
  2. MONTELUKAST [Concomitant]
     Active Substance: MONTELUKAST SODIUM
  3. COMBIVENT [Concomitant]
     Active Substance: ALBUTEROL SULFATE\IPRATROPIUM BROMIDE
  4. CENTRUM [Concomitant]
     Active Substance: VITAMINS
  5. FENITOINA [Concomitant]
     Active Substance: PHENYTOIN
  6. PERSANTINE [Concomitant]
     Active Substance: DIPYRIDAMOLE
  7. CLONAZEPAM. [Concomitant]
     Active Substance: CLONAZEPAM
  8. FLUTICASONE. [Concomitant]
     Active Substance: FLUTICASONE
  9. PHENYTOIN. [Concomitant]
     Active Substance: PHENYTOIN
  10. INDACATEROL [Suspect]
     Active Substance: INDACATEROL
     Indication: CHRONIC OBSTRUCTIVE PULMONARY DISEASE
     Dosage: 150 ?G, QD
     Route: 065
     Dates: start: 2013
  11. SPIRIVA [Concomitant]
     Active Substance: TIOTROPIUM BROMIDE MONOHYDRATE

REACTIONS (17)
  - Chronic obstructive pulmonary disease [Unknown]
  - Gait disturbance [Unknown]
  - Erythema [Unknown]
  - Dyspnoea [Unknown]
  - Expired product administered [Unknown]
  - Depression [Unknown]
  - Malaise [Unknown]
  - Viral upper respiratory tract infection [Unknown]
  - Embolism [Unknown]
  - Injection site haemorrhage [Unknown]
  - Sputum retention [Unknown]
  - Agitation [Unknown]
  - Fatigue [Unknown]
  - Musculoskeletal discomfort [Unknown]
  - Nasal congestion [Unknown]
  - Productive cough [Unknown]
  - Wrong technique in product usage process [Unknown]
